FAERS Safety Report 24178619 (Version 4)
Quarter: 2024Q4

REPORT INFORMATION
  Report Type: Spontaneous
  Country: US (occurrence: US)
  Receive Date: 20240806
  Receipt Date: 20241217
  Transmission Date: 20250115
  Serious: No
  Sender: PFIZER
  Company Number: US-PFIZER INC-202400228948

PATIENT
  Age: 43 Year
  Sex: Female

DRUGS (2)
  1. SOMAVERT [Suspect]
     Active Substance: PEGVISOMANT
     Dosage: UNKNOWN
  2. SOMAVERT [Suspect]
     Active Substance: PEGVISOMANT
     Dosage: TWICE A WEEK

REACTIONS (3)
  - Bone pain [Unknown]
  - Pain [Unknown]
  - Off label use [Unknown]
